FAERS Safety Report 14756085 (Version 3)
Quarter: 2020Q1

REPORT INFORMATION
  Report Type: Report from Study
  Country: IT (occurrence: IT)
  Receive Date: 20180413
  Receipt Date: 20200110
  Transmission Date: 20200409
  Serious: Yes (Other)
  Sender: FDA-Public Use
  Company Number: IT-AUROBINDO-AUR-APL-2018-019351

PATIENT

DRUGS (9)
  1. DIBASE [Concomitant]
     Active Substance: CHOLECALCIFEROL
     Indication: PRODUCT USED FOR UNKNOWN INDICATION
     Dosage: 10000 UI/ML 10 ML; 20 DROPS/WEEK
     Route: 065
  2. PAROXETINE. [Concomitant]
     Active Substance: PAROXETINE
     Indication: PRODUCT USED FOR UNKNOWN INDICATION
     Dosage: 20 MILLIGRAM, ONCE A DAY
     Route: 065
  3. CYMBALTA [Concomitant]
     Active Substance: DULOXETINE HYDROCHLORIDE
     Indication: PRODUCT USED FOR UNKNOWN INDICATION
     Dosage: 60 MILLIGRAM, ONCE A DAY
     Route: 065
  4. RILPIVIRINE [Suspect]
     Active Substance: RILPIVIRINE
     Indication: HIV INFECTION
     Dosage: UNK
     Route: 065
  5. PAROXETINE. [Concomitant]
     Active Substance: PAROXETINE
     Dosage: 20 MILLIGRAM
     Route: 065
  6. CARBOLITHIUM [Concomitant]
     Active Substance: LITHIUM CARBONATE
     Indication: PRODUCT USED FOR UNKNOWN INDICATION
     Dosage: 3 DOSAGE FORM, ONCE A DAY
     Route: 065
  7. PRIMOLUT NOR [Concomitant]
     Active Substance: NORETHINDRONE ACETATE
     Indication: PRODUCT USED FOR UNKNOWN INDICATION
     Dosage: 10 MILLIGRAM, ONCE A DAY
     Route: 065
  8. ABACAVIR+LAMIVUDINE [Suspect]
     Active Substance: ABACAVIR SULFATE\LAMIVUDINE
     Indication: HIV INFECTION
     Dosage: UNK
     Route: 065
  9. PREFOLIC [Concomitant]
     Active Substance: LEUCOVORIN CALCIUM
     Indication: PRODUCT USED FOR UNKNOWN INDICATION
     Dosage: 15 MILLIGRAM, ONCE A DAY
     Route: 065

REACTIONS (2)
  - Hepatotoxicity [Unknown]
  - Toxicity to various agents [Unknown]
